FAERS Safety Report 6829014-9 (Version None)
Quarter: 2010Q3

REPORT INFORMATION
  Report Type: 
  Country: None (occurrence: None)
  Receive Date: 20100709
  Receipt Date: 20070508
  Transmission Date: 20110219
  Serious: No
  Sender: FDA-Public Use
  Company Number: US-PFIZER INC-2007015882

PATIENT
  Sex: Female
  Weight: 64.41 kg

DRUGS (9)
  1. CHANTIX [Suspect]
     Indication: SMOKING CESSATION THERAPY
     Route: 048
     Dates: start: 20070219
  2. SYNTHROID [Concomitant]
  3. PREMARIN [Concomitant]
  4. MONTELUKAST SODIUM [Concomitant]
  5. VYTORIN [Concomitant]
  6. NEXIUM [Concomitant]
     Indication: BARRETT'S OESOPHAGUS
  7. BENICAR [Concomitant]
  8. TRIAMTERENE [Concomitant]
  9. SPIRIVA [Concomitant]

REACTIONS (4)
  - DYSGEUSIA [None]
  - NAUSEA [None]
  - PAROSMIA [None]
  - VOMITING [None]
